FAERS Safety Report 4403966-9 (Version None)
Quarter: 2004Q3

REPORT INFORMATION
  Report Type: 
  Country: None (occurrence: None)
  Receive Date: 20040719
  Receipt Date: 20040709
  Transmission Date: 20050211
  Serious: Yes (Other)
  Sender: FDA-Public Use
  Company Number: 2004-04-1814

PATIENT
  Age: 67 Year
  Sex: Male

DRUGS (7)
  1. GENTAMICIN SULFATE [Suspect]
     Indication: INFECTION
     Dates: start: 20000313, end: 20000314
  2. GENTAMICIN SULFATE [Suspect]
     Indication: SCAR
     Dates: start: 20000313, end: 20000314
  3. BRISTOPEN [Concomitant]
  4. VANCOMYCIN [Concomitant]
  5. PITUITARY HORMONE [Concomitant]
  6. .. [Concomitant]
  7. FUCIDINE CAP [Concomitant]

REACTIONS (5)
  - INFLAMMATION [None]
  - NERVOUS SYSTEM DISORDER [None]
  - STAPHYLOCOCCAL INFECTION [None]
  - VERTIGO [None]
  - VESTIBULAR DISORDER [None]
